FAERS Safety Report 9307127 (Version 1)
Quarter: 2013Q2

REPORT INFORMATION
  Report Type: Spontaneous
  Country: BR (occurrence: BR)
  Receive Date: 20130524
  Receipt Date: 20130524
  Transmission Date: 20140414
  Serious: Yes (Other)
  Sender: FDA-Public Use
  Company Number: BR-AMGEN-BRASP2012063793

PATIENT
  Age: 62 Year
  Sex: Female
  Weight: 79 kg

DRUGS (7)
  1. ENBREL [Suspect]
     Indication: ANKYLOSING SPONDYLITIS
     Dosage: 25 MG, 2X/WEEK
     Route: 058
     Dates: start: 201103, end: 201208
  2. METHOTREXATE [Concomitant]
     Dosage: UNK
  3. DIOVAN [Concomitant]
     Dosage: UNK
  4. OMEPRAZOLE [Concomitant]
     Dosage: UNK
  5. CALCIUM [Concomitant]
     Dosage: UNK
  6. VITAMIN D                          /00107901/ [Concomitant]
     Dosage: UNK
  7. PURAN T4 [Concomitant]
     Dosage: UNK

REACTIONS (3)
  - Iritis [Unknown]
  - Herpes virus infection [Unknown]
  - Uveitis [Unknown]
